FAERS Safety Report 12696773 (Version 2)
Quarter: 2017Q1

REPORT INFORMATION
  Report Type: Spontaneous
  Country: FR (occurrence: FR)
  Receive Date: 20160830
  Receipt Date: 20170103
  Transmission Date: 20170428
  Serious: Yes (Hospitalization, Other)
  Sender: FDA-Public Use
  Company Number: FR-009507513-1608FRA013663

PATIENT
  Age: 76 Year
  Sex: Female

DRUGS (4)
  1. NOXAFIL [Suspect]
     Active Substance: POSACONAZOLE
     Dosage: 3 MEASURING-SPOON, ONCE DAILY
     Route: 048
     Dates: end: 20160729
  2. CANCIDAS [Suspect]
     Active Substance: CASPOFUNGIN ACETATE
     Dosage: 50 MG
     Dates: start: 20160729, end: 20160812
  3. NOXAFIL [Suspect]
     Active Substance: POSACONAZOLE
     Dosage: 3 MEASURING-SPOON, ONCE DAILY
     Route: 048
     Dates: start: 20160813, end: 20160817
  4. AMLODIPINE BESYLATE. [Suspect]
     Active Substance: AMLODIPINE BESYLATE
     Dosage: 5 MG
     Route: 048
     Dates: start: 20160805

REACTIONS (2)
  - Toxic skin eruption [Unknown]
  - Rash [Unknown]

NARRATIVE: CASE EVENT DATE: 20160816
